FAERS Safety Report 8494705-3 (Version None)
Quarter: 2012Q2

REPORT INFORMATION
  Report Type: 
  Country: None (occurrence: None)
  Receive Date: 20120627
  Receipt Date: 20120618
  Transmission Date: 20120825
  Serious: Yes (Hospitalization)
  Sender: FDA-Public Use
  Company Number: AUR-APL-2012-02681

PATIENT
  Age: 15 Year
  Sex: Female

DRUGS (3)
  1. VALPROATE SODIUM [Concomitant]
  2. LAMOTRIGINE [Suspect]
     Indication: EPILEPSY
     Dosage: 25 MG (25 MG,1 IN 1 D),ORAL ; 12.5 MG (25 MG,1 IN 2 D),ORAL
     Route: 048
     Dates: end: 20120520
  3. LAMOTRIGINE [Suspect]
     Indication: EPILEPSY
     Dosage: 25 MG (25 MG,1 IN 1 D),ORAL ; 12.5 MG (25 MG,1 IN 2 D),ORAL
     Route: 048
     Dates: start: 20120521, end: 20120601

REACTIONS (5)
  - STEVENS-JOHNSON SYNDROME [None]
  - PYREXIA [None]
  - CONJUNCTIVAL DISORDER [None]
  - ORAL DISORDER [None]
  - RASH [None]
